FAERS Safety Report 8798540 (Version 2)
Quarter: 2012Q4

REPORT INFORMATION
  Report Type: Spontaneous
  Country: US (occurrence: None)
  Receive Date: 20120914
  Receipt Date: 20120921
  Transmission Date: 20130627
  Serious: Yes (Hospitalization)
  Sender: FDA-Public Use
  Company Number: 2012AP002921

PATIENT
  Age: 57 Year
  Sex: Male

DRUGS (8)
  1. CEFUROXIME AXETIL TABLETS USP 250 MG (CEFUROXIME AXETIL) INFECTION [Suspect]
  2. AMIODARONE [Suspect]
  3. HYDRALAZINE [Suspect]
  4. PARACETAMOL [Suspect]
  5. FUROSEMIDE [Concomitant]
  6. PHENYLEPHRINE [Concomitant]
  7. NOREPINEPHRINE [Concomitant]
  8. VASOPRESSIN [Concomitant]

REACTIONS (8)
  - Hepatotoxicity [None]
  - Hypotension [None]
  - Hyperkalaemia [None]
  - Haemolysis [None]
  - Bradycardia [None]
  - Atrial fibrillation [None]
  - Hypoventilation [None]
  - Mental impairment [None]
